FAERS Safety Report 10028024 (Version 3)
Quarter: 2014Q3

REPORT INFORMATION
  Report Type: Spontaneous
  Country: US (occurrence: None)
  Receive Date: 20140228
  Receipt Date: 20140822
  Transmission Date: 20150326
  Serious: No
  Sender: FDA-Public Use
  Company Number: 2014-US-000356

PATIENT
  Age: 55 Year
  Sex: Female
  Weight: 62.1 kg

DRUGS (11)
  1. NUVIGIL [Concomitant]
     Active Substance: ARMODAFINIL
  2. POTASSIUM (POTASSIUM CHLORIDE) [Concomitant]
  3. LIVALO (PITAVASTATIN CALCIUM) [Concomitant]
  4. MOBIC (MELOXICAM) [Concomitant]
  5. CYMBALTA [Concomitant]
     Active Substance: DULOXETINE HYDROCHLORIDE
  6. FOLIC ACID (FOLIC ACID) [Concomitant]
     Active Substance: FOLIC ACID
  7. XYREM [Suspect]
     Active Substance: SODIUM OXYBATE
     Indication: NARCOLEPSY
     Route: 048
     Dates: start: 201311, end: 201312
  8. LYRICA [Suspect]
     Active Substance: PREGABALIN
     Indication: PAIN IN EXTREMITY
     Dosage: UNKNOWN DOSE
     Route: 048
  9. LOSARTAN (LOSARTAN POTASSIUM) [Concomitant]
  10. METHOTREXATE (METHOTREXATE SODIUM) [Concomitant]
     Active Substance: METHOTREXATE SODIUM
  11. EVOXAC (CEVIMELLINE HYDROCHLORIDE) [Concomitant]

REACTIONS (4)
  - Pain in extremity [None]
  - Adrenal insufficiency [None]
  - Sleep apnoea syndrome [None]
  - Dizziness [None]
